FAERS Safety Report 8912824 (Version 4)
Quarter: 2014Q2

REPORT INFORMATION
  Report Type: Report from Study
  Country: JP (occurrence: JP)
  Receive Date: 20121116
  Receipt Date: 20140520
  Transmission Date: 20141212
  Serious: Yes (Other)
  Sender: FDA-Public Use
  Company Number: JP-VERTEX PHARMACEUTICAL INC.-2012-024614

PATIENT
  Age: 60 Year
  Sex: Male

DRUGS (11)
  1. VX-950 (TELAPREVIR) [Suspect]
     Indication: CHRONIC HEPATITIS C
     Dosage: 2250 MG, QD
     Route: 048
     Dates: start: 20120920, end: 20120923
  2. VX-950 (TELAPREVIR) [Suspect]
     Dosage: 1500 MG, QD
     Route: 048
     Dates: start: 20121005, end: 20121217
  3. RIBAVIRIN [Suspect]
     Indication: CHRONIC HEPATITIS C
     Dosage: 800 MG, QD
     Route: 048
     Dates: start: 20120919, end: 20121007
  4. RIBAVIRIN [Suspect]
     Dosage: 400 MG, QD
     Route: 048
     Dates: start: 20121008, end: 20121015
  5. RIBAVIRIN [Suspect]
     Dosage: 600 MG, QD
     Route: 048
     Dates: start: 20121016, end: 20121022
  6. RIBAVIRIN [Suspect]
     Dosage: 400 MG, QD
     Route: 048
     Dates: start: 20121023
  7. PEGINTERFERON ALFA-2B [Suspect]
     Indication: CHRONIC HEPATITIS C
     Dosage: 1.5 ?G/KG, QW
     Route: 058
     Dates: start: 20120920, end: 20120927
  8. PEGINTERFERON ALFA-2B [Suspect]
     Dosage: 1.0 ?G/KG, QW
     Route: 058
     Dates: start: 20121001, end: 20121008
  9. PEGINTERFERON ALFA-2B [Suspect]
     Dosage: 1.2 ?G/KG, QW
     Route: 058
     Dates: start: 20121009, end: 20121015
  10. PEGINTERFERON ALFA-2B [Suspect]
     Dosage: 1.5 ?G/KG, QW
     Route: 058
     Dates: start: 20121016, end: 20121105
  11. PEGINTERFERON ALFA-2B [Suspect]
     Dosage: 1.0 ?G/KG, QW
     Route: 058
     Dates: start: 20121106

REACTIONS (1)
  - Intra-abdominal haemorrhage [Recovered/Resolved]
